FAERS Safety Report 11467923 (Version 1)
Quarter: 2015Q3

REPORT INFORMATION
  Report Type: Spontaneous
  Country: US (occurrence: US)
  Receive Date: 20150908
  Receipt Date: 20150908
  Transmission Date: 20151125
  Serious: Yes (Other)
  Sender: FDA-Public Use
  Company Number: US-TARO PHARMACEUTICALS USA.,INC-2015SUN01908

PATIENT
  Age: 49 Year
  Sex: Male

DRUGS (8)
  1. BUPROPION XL [Concomitant]
     Active Substance: BUPROPION
     Dosage: 300 MG, QD
  2. HYDROXYZINE [Suspect]
     Active Substance: HYDROXYZINE\HYDROXYZINE HYDROCHLORIDE
     Indication: ECZEMA
     Dosage: 25 MG, BID
     Route: 065
  3. OMEPRAZOLE. [Concomitant]
     Active Substance: OMEPRAZOLE
     Dosage: 20 MG, DAILY
  4. CLOBETASOL PROPIONATE CREAM USP, 0.05% [Suspect]
     Active Substance: CLOBETASOL PROPIONATE
     Indication: ECZEMA
     Dosage: UNK, QD
     Route: 061
  5. LORATADINE. [Concomitant]
     Active Substance: LORATADINE
     Dosage: 10 MG, QD
  6. PRAVASTATIN [Concomitant]
     Active Substance: PRAVASTATIN\PRAVASTATIN SODIUM
     Dosage: 40 MG, QD
  7. ALBUTEROL HFA 2 [Concomitant]
     Dosage: PUFFS AS NEEDED
  8. MONTELUKAST [Concomitant]
     Active Substance: MONTELUKAST SODIUM
     Dosage: 10 MG, QD

REACTIONS (2)
  - Chorioretinopathy [Unknown]
  - Visual acuity reduced [Unknown]
